FAERS Safety Report 8592433-7 (Version None)
Quarter: 2012Q3

REPORT INFORMATION
  Report Type: 
  Country: None (occurrence: None)
  Receive Date: 20120814
  Receipt Date: 20120805
  Transmission Date: 20120928
  Serious: No
  Sender: FDA-Public Use
  Company Number: US-BAYER-2012-081018

PATIENT
  Age: 20 Year
  Sex: Female

DRUGS (2)
  1. ALEVE (CAPLET) [Suspect]
     Indication: BACK PAIN
     Dosage: 3 DF, ONCE
     Route: 048
     Dates: start: 20120805, end: 20120805
  2. UNKNOWN MIGRAINE MEDICATION [Concomitant]

REACTIONS (1)
  - NO ADVERSE EVENT [None]
